FAERS Safety Report 5885958-6 (Version None)
Quarter: 2008Q3

REPORT INFORMATION
  Report Type: 
  Country: None (occurrence: None)
  Receive Date: 20080917
  Receipt Date: 20080915
  Transmission Date: 20090109
  Serious: Yes (Death, Other)
  Sender: FDA-Public Use
  Company Number: FR-RB-003519-08

PATIENT
  Sex: Male

DRUGS (5)
  1. SUBUTEX [Suspect]
     Indication: DRUG THERAPY
     Route: 060
     Dates: start: 19980101
  2. TOBACCO [Suspect]
     Indication: DRUG USE FOR UNKNOWN INDICATION
     Dosage: UNKNOWN DAILY DOSE
     Route: 065
  3. CANNABIS [Suspect]
     Indication: DRUG USE FOR UNKNOWN INDICATION
     Dosage: UNKNOWN DOSE AND FREQUENCY
     Route: 065
  4. ACETAMINOPHEN [Concomitant]
     Indication: DRUG USE FOR UNKNOWN INDICATION
     Dosage: UNKNOWN DOSE AND FREQUENCY
  5. VENTOLIN [Concomitant]
     Indication: DRUG USE FOR UNKNOWN INDICATION
     Dosage: UNKNOWN DOSE AND FREQUENCY

REACTIONS (2)
  - LUNG NEOPLASM MALIGNANT [None]
  - SUBSTANCE ABUSE [None]
